FAERS Safety Report 23152261 (Version 3)
Quarter: 2024Q1

REPORT INFORMATION
  Report Type: Spontaneous
  Country: US (occurrence: US)
  Receive Date: 20231107
  Receipt Date: 20240125
  Transmission Date: 20240410
  Serious: No
  Sender: FDA-Public Use
  Company Number: US-BRISTOL-MYERS SQUIBB COMPANY-2023-157561

PATIENT
  Age: 80 Year
  Sex: Female
  Weight: 96.16 kg

DRUGS (1)
  1. REVLIMID [Suspect]
     Active Substance: LENALIDOMIDE
     Indication: Plasma cell myeloma
     Route: 048
     Dates: start: 20231001

REACTIONS (7)
  - Muscle spasms [Recovering/Resolving]
  - Paraesthesia oral [Unknown]
  - Calcium deficiency [Unknown]
  - Dyspepsia [Unknown]
  - Asthenia [Unknown]
  - Dizziness [Unknown]
  - Diarrhoea [Recovering/Resolving]
